FAERS Safety Report 9035550 (Version 1)
Quarter: 2013Q1

REPORT INFORMATION
  Report Type: Report from Study
  Country: NL (occurrence: NL)
  Receive Date: 20130129
  Receipt Date: 20130129
  Transmission Date: 20140127
  Serious: Yes (Other)
  Sender: FDA-Public Use
  Company Number: NL-ABBOTT-11P-114-0729414-00

PATIENT
  Sex: Female
  Weight: 65 kg

DRUGS (3)
  1. LUCRIN DEPOT [Suspect]
     Indication: BREAST CANCER
     Route: 058
     Dates: start: 20110303
  2. TAMOXIFEN [Concomitant]
     Indication: BREAST CANCER
     Route: 048
     Dates: start: 201103
  3. CALCIUM CARB [Concomitant]
     Indication: OSTEOPOROSIS PROPHYLAXIS
     Route: 048
     Dates: start: 201104

REACTIONS (15)
  - Carpal tunnel syndrome [Unknown]
  - Diarrhoea [Recovered/Resolved]
  - Urinary incontinence [Recovering/Resolving]
  - Hot flush [Recovering/Resolving]
  - Hyperhidrosis [Recovering/Resolving]
  - Arthralgia [Recovering/Resolving]
  - Restless legs syndrome [Recovering/Resolving]
  - Abdominal symptom [Recovering/Resolving]
  - Nausea [Recovering/Resolving]
  - Poor quality sleep [Recovering/Resolving]
  - Arthralgia [Unknown]
  - Joint stiffness [Unknown]
  - Pain [Unknown]
  - Gait disturbance [Unknown]
  - Diarrhoea [Not Recovered/Not Resolved]
